FAERS Safety Report 7428015-X (Version None)
Quarter: 2011Q2

REPORT INFORMATION
  Report Type: 
  Country: None (occurrence: None)
  Receive Date: 20110413
  Receipt Date: 20110325
  Transmission Date: 20111010
  Serious: Yes (Other)
  Sender: FDA-Public Use
  Company Number: 2011SP013930

PATIENT
  Age: 52 Year
  Sex: Female
  Weight: 92.4 kg

DRUGS (2)
  1. RIBAVIRIN [Suspect]
     Indication: HEPATITIS C
     Dosage: 1200 MG;QD;PO
     Route: 048
     Dates: start: 20100122, end: 20100709
  2. PEG-INTRON [Suspect]
     Indication: HEPATITIS C
     Dosage: 150 MCG; SC
     Route: 058
     Dates: start: 20100122, end: 20100709

REACTIONS (11)
  - COUGH [None]
  - ALOPECIA [None]
  - URTICARIA [None]
  - ANAEMIA [None]
  - DYSPNOEA EXERTIONAL [None]
  - DEPRESSED MOOD [None]
  - MUSCULOSKELETAL PAIN [None]
  - ASTHENIA [None]
  - TOXIC SKIN ERUPTION [None]
  - TINNITUS [None]
  - ABDOMINAL PAIN UPPER [None]
